FAERS Safety Report 8593295 (Version 4)
Quarter: 2014Q1

REPORT INFORMATION
  Report Type: Spontaneous
  Country: US (occurrence: US)
  Receive Date: 20120604
  Receipt Date: 20140122
  Transmission Date: 20141002
  Serious: Yes (Disabling)
  Sender: FDA-Public Use
  Company Number: US-ASTRAZENECA-2012SE35220

PATIENT
  Age: 43 Year
  Sex: Female

DRUGS (18)
  1. NEXIUM [Suspect]
     Indication: GASTROOESOPHAGEAL REFLUX DISEASE
     Dosage: ONCE
     Route: 048
  2. NEXIUM [Suspect]
     Indication: GASTROOESOPHAGEAL REFLUX DISEASE
     Route: 048
     Dates: end: 20070510
  3. NEXIUM [Suspect]
     Indication: GASTROOESOPHAGEAL REFLUX DISEASE
     Route: 048
     Dates: start: 20060723
  4. ZANTAC [Concomitant]
  5. ASPIRIN [Concomitant]
  6. LANTUS [Concomitant]
     Dosage: 70 UNITS
     Dates: start: 20070119
  7. CLONIDINE [Concomitant]
  8. LISINOPRIL [Concomitant]
  9. FUROSEMIDE [Concomitant]
     Dates: start: 20070119
  10. K-TAB [Concomitant]
     Dates: start: 20070119, end: 20070510
  11. NOVALOP [Concomitant]
  12. XANAX [Concomitant]
  13. TOPROL XL [Concomitant]
     Dates: start: 20070119
  14. TOPROL XL [Concomitant]
     Dates: end: 20070510
  15. AMITRIPTYLINE [Concomitant]
     Dates: start: 20070119
  16. ATACAND [Concomitant]
     Dates: start: 20070119, end: 20070510
  17. HCTZ [Concomitant]
     Dates: end: 20070510
  18. SOMA [Concomitant]
     Dates: end: 20070510

REACTIONS (11)
  - Anxiety [Unknown]
  - Arthropathy [Unknown]
  - Fall [Unknown]
  - Osteoporosis [Unknown]
  - Multiple fractures [Unknown]
  - Lower limb fracture [Unknown]
  - Ankle fracture [Unknown]
  - Bone pain [Unknown]
  - Angina pectoris [Unknown]
  - Lung disorder [Unknown]
  - Diabetes mellitus [Unknown]
